FAERS Safety Report 9791571 (Version 1)
Quarter: 2014Q1

REPORT INFORMATION
  Report Type: Other
  Country: GB (occurrence: GB)
  Receive Date: 20140101
  Receipt Date: 20140101
  Transmission Date: 20141002
  Serious: Yes (Hospitalization)
  Sender: FDA-Public Use
  Company Number: GB-TAKEDA-2013TJP004104

PATIENT
  Sex: 0

DRUGS (4)
  1. LANSOPRAZOLE [Suspect]
     Indication: PRODUCT USED FOR UNKNOWN INDICATION
     Route: 048
  2. NITROFURANTOIN [Suspect]
     Indication: PRODUCT USED FOR UNKNOWN INDICATION
     Dosage: 50 MG, QID
     Route: 048
     Dates: start: 20111124, end: 20111201
  3. ERTAPENEM [Suspect]
     Indication: PRODUCT USED FOR UNKNOWN INDICATION
     Dosage: 1 DF, SINGLE
     Dates: start: 20111110, end: 20111110
  4. GENTAMICIN [Concomitant]
     Dosage: UNK
     Dates: start: 20111111, end: 20111125

REACTIONS (1)
  - Clostridium difficile infection [Recovered/Resolved]
